FAERS Safety Report 15260351 (Version 2)
Quarter: 2018Q3

REPORT INFORMATION
  Report Type: Spontaneous
  Country: US (occurrence: US)
  Receive Date: 20180809
  Receipt Date: 20180921
  Transmission Date: 20181010
  Serious: Yes (Other)
  Sender: FDA-Public Use
  Company Number: US-INTERCEPT-PMOCA2018001244

PATIENT

DRUGS (1)
  1. OCALIVA [Suspect]
     Active Substance: OBETICHOLIC ACID
     Indication: PRIMARY BILIARY CHOLANGITIS
     Dosage: 5 MG, QD
     Route: 048
     Dates: start: 20180711, end: 20180714

REACTIONS (9)
  - Dysarthria [Unknown]
  - Fatigue [Unknown]
  - Pruritus [Unknown]
  - Constipation [Unknown]
  - Abdominal distension [Unknown]
  - Confusional state [Unknown]
  - Skin discolouration [Unknown]
  - Melaena [Unknown]
  - Muscle spasms [Unknown]

NARRATIVE: CASE EVENT DATE: 201807
